FAERS Safety Report 17587188 (Version 1)
Quarter: 2020Q1

REPORT INFORMATION
  Report Type: Spontaneous
  Country: GB (occurrence: GB)
  Receive Date: 20200326
  Receipt Date: 20200326
  Transmission Date: 20200409
  Serious: Yes (Death, Other)
  Sender: FDA-Public Use
  Company Number: GB-MYLANLABS-2020M1031847

PATIENT
  Sex: Female

DRUGS (4)
  1. PROPRANOLOL [Suspect]
     Active Substance: PROPRANOLOL HYDROCHLORIDE
     Indication: ANXIETY
     Dosage: 240 MG, QD
     Route: 065
  2. CITALOPRAM [Suspect]
     Active Substance: CITALOPRAM HYDROBROMIDE
     Indication: ANTIDEPRESSANT THERAPY
     Dosage: 20 MG, QD
     Route: 065
  3. PROPRANOLOL [Suspect]
     Active Substance: PROPRANOLOL HYDROCHLORIDE
     Indication: MIGRAINE PROPHYLAXIS
     Dosage: UNK
     Route: 065
  4. SERTRALINE [Suspect]
     Active Substance: SERTRALINE HYDROCHLORIDE
     Indication: ANTIDEPRESSANT THERAPY
     Dosage: UNK
     Route: 065

REACTIONS (10)
  - Cardiac arrest [Fatal]
  - Suicidal ideation [Recovered/Resolved]
  - Pulseless electrical activity [Fatal]
  - Pulse absent [Fatal]
  - Mydriasis [Fatal]
  - Bradycardia [Fatal]
  - Seizure [Unknown]
  - Aphasia [Unknown]
  - Movement disorder [Unknown]
  - Intentional overdose [Unknown]
